FAERS Safety Report 25927053 (Version 1)
Quarter: 2025Q4

REPORT INFORMATION
  Report Type: Spontaneous
  Country: EU (occurrence: EU)
  Receive Date: 20251015
  Receipt Date: 20251015
  Transmission Date: 20260118
  Serious: Yes (Other)
  Sender: MERCK SHARP & DOHME LLC
  Company Number: EU-009507513-2340084

PATIENT
  Age: 62 Year
  Sex: Male

DRUGS (2)
  1. TEDIZOLID [Suspect]
     Active Substance: TEDIZOLID
     Dates: start: 2025
  2. LINEZOLID [Concomitant]
     Active Substance: LINEZOLID

REACTIONS (1)
  - Neutropenia [Recovered/Resolved]

NARRATIVE: CASE EVENT DATE: 20250101
